FAERS Safety Report 22519193 (Version 1)
Quarter: 2023Q2

REPORT INFORMATION
  Report Type: Spontaneous
  Country: US (occurrence: US)
  Receive Date: 20230605
  Receipt Date: 20230605
  Transmission Date: 20230722
  Serious: Yes (Other)
  Sender: FDA-Public Use
  Company Number: US-STRIDES ARCOLAB LIMITED-2023SP008179

PATIENT
  Age: 31 Year

DRUGS (1)
  1. TESTOSTERONE [Suspect]
     Active Substance: TESTOSTERONE
     Indication: Transgender hormonal therapy
     Dosage: UNK
     Route: 065

REACTIONS (2)
  - Coronary artery dissection [Unknown]
  - Off label use [Unknown]
